FAERS Safety Report 12207180 (Version 1)
Quarter: 2016Q1

REPORT INFORMATION
  Report Type: Spontaneous
  Country: US (occurrence: US)
  Receive Date: 20160324
  Receipt Date: 20160324
  Transmission Date: 20160526
  Serious: No
  Sender: FDA-Public Use
  Company Number: US-JNJFOC-20160305165

PATIENT
  Sex: Female

DRUGS (2)
  1. REMICADE [Suspect]
     Active Substance: INFLIXIMAB
     Indication: RHEUMATOID ARTHRITIS
     Dosage: TWO DOSES
     Route: 042
     Dates: start: 201602
  2. REMICADE [Suspect]
     Active Substance: INFLIXIMAB
     Indication: RHEUMATOID ARTHRITIS
     Route: 042
     Dates: start: 20160301

REACTIONS (10)
  - Gingivitis [Unknown]
  - Erythema [Unknown]
  - Abasia [Unknown]
  - Flushing [Unknown]
  - Adverse event [Unknown]
  - Aphasia [Unknown]
  - Fatigue [Unknown]
  - Disorientation [Unknown]
  - Infusion related reaction [Unknown]
  - Somnolence [Unknown]

NARRATIVE: CASE EVENT DATE: 2016
